FAERS Safety Report 13754134 (Version 1)
Quarter: 2017Q3

REPORT INFORMATION
  Report Type: Spontaneous
  Country: US (occurrence: US)
  Receive Date: 20170714
  Receipt Date: 20170714
  Transmission Date: 20171127
  Serious: Yes (Hospitalization)
  Sender: FDA-Public Use
  Company Number: None

PATIENT
  Age: 52 Year
  Sex: Male
  Weight: 88.9 kg

DRUGS (1)
  1. CISPLATIN. [Suspect]
     Active Substance: CISPLATIN
     Dates: end: 20170619

REACTIONS (7)
  - Candida infection [None]
  - Mucosal inflammation [None]
  - Pain [None]
  - Thrombophlebitis [None]
  - Febrile neutropenia [None]
  - Brachiocephalic vein thrombosis [None]
  - Nodule [None]

NARRATIVE: CASE EVENT DATE: 20170702
